FAERS Safety Report 8235995-1 (Version None)
Quarter: 2012Q1

REPORT INFORMATION
  Report Type: 
  Country: None (occurrence: None)
  Receive Date: 20120326
  Receipt Date: 20120210
  Transmission Date: 20120608
  Serious: Yes (Death)
  Sender: FDA-Public Use
  Company Number: BR-ASTRAZENECA-2012SE19445

PATIENT
  Age: 45 Year
  Sex: Male

DRUGS (2)
  1. VANCOMYCIN [Concomitant]
     Indication: PNEUMONIA ASPIRATION
     Route: 042
  2. MEROPENEM [Suspect]
     Indication: PSEUDOMONAS INFECTION
     Dosage: THREE TIMES A DAY
     Route: 042

REACTIONS (1)
  - DEATH [None]
